FAERS Safety Report 9878623 (Version 2)
Quarter: 2014Q1

REPORT INFORMATION
  Report Type: Spontaneous
  Country: US (occurrence: US)
  Receive Date: 20140206
  Receipt Date: 20140206
  Transmission Date: 20141002
  Serious: No
  Sender: FDA-Public Use
  Company Number: US-ALLERGAN-1307665US

PATIENT
  Age: 37 Year
  Sex: Female
  Weight: 45.35 kg

DRUGS (2)
  1. BOTOX [Suspect]
     Indication: TORTICOLLIS
     Dosage: 175 UNITS, SINGLE
     Route: 030
     Dates: start: 20130503, end: 20130503
  2. BOTOX [Suspect]
     Indication: MIGRAINE

REACTIONS (3)
  - Asthenia [Recovering/Resolving]
  - Fatigue [Recovering/Resolving]
  - Muscle spasms [Recovering/Resolving]
